FAERS Safety Report 5135697-4 (Version None)
Quarter: 2006Q4

REPORT INFORMATION
  Report Type: 
  Country: None (occurrence: None)
  Receive Date: 20061026
  Receipt Date: 20060524
  Transmission Date: 20070319
  Serious: Yes (Other)
  Sender: FDA-Public Use
  Company Number: FR-BRISTOL-MYERS SQUIBB COMPANY-13551650

PATIENT

DRUGS (3)
  1. ERBITUX [Suspect]
     Indication: RECTAL CANCER
     Route: 042
  2. TAXOL [Suspect]
     Indication: RECTAL CANCER
     Route: 042
  3. CARBOPLATIN [Suspect]
     Indication: RECTAL CANCER
     Route: 042

REACTIONS (5)
  - APHTHOUS STOMATITIS [None]
  - DERMATITIS ACNEIFORM [None]
  - HYPERTRICHOSIS [None]
  - STOMATITIS [None]
  - TRICHOMEGALY [None]
